FAERS Safety Report 4741642-3 (Version None)
Quarter: 2005Q3

REPORT INFORMATION
  Report Type: 
  Country: None (occurrence: None)
  Receive Date: 20050801
  Receipt Date: 20050605
  Transmission Date: 20060218
  Serious: No
  Sender: FDA-Public Use
  Company Number: 2005PV000014

PATIENT
  Age: 52 Year
  Sex: Male
  Weight: 131.5431 kg

DRUGS (6)
  1. BYETTA [Suspect]
     Indication: DIABETES MELLITUS NON-INSULIN-DEPENDENT
     Dosage: 10 UG; BID; SC
     Route: 058
     Dates: start: 20050604
  2. HUMALOG MIX 25 [Concomitant]
  3. MIETFORMIN [Concomitant]
  4. GLUCOPHAGE ^BRISTOLE-MYERS SQUIBB^ [Concomitant]
  5. ALTACE [Concomitant]
  6. CARTIA XT [Concomitant]

REACTIONS (4)
  - BLOOD GLUCOSE DECREASED [None]
  - DISTURBANCE IN ATTENTION [None]
  - FATIGUE [None]
  - NAUSEA [None]
